FAERS Safety Report 19158115 (Version 1)
Quarter: 2021Q2

REPORT INFORMATION
  Report Type: Other
  Country: CA (occurrence: CA)
  Receive Date: 20210420
  Receipt Date: 20210420
  Transmission Date: 20210717
  Serious: Yes (Death, Hospitalization, Other)
  Sender: FDA-Public Use
  Company Number: CA-APOTEX-2021AP009117

PATIENT
  Age: 73 Year
  Sex: Male
  Weight: 58.96 kg

DRUGS (1)
  1. ALLOPURINOL. [Suspect]
     Active Substance: ALLOPURINOL
     Indication: BLOOD URIC ACID INCREASED
     Dosage: UNK, QD
     Route: 048

REACTIONS (21)
  - Eye swelling [Fatal]
  - Asthenia [Fatal]
  - Blood sodium decreased [Fatal]
  - Cough [Fatal]
  - Platelet transfusion [Fatal]
  - Urinary retention [Fatal]
  - Transfusion [Fatal]
  - Haematochezia [Fatal]
  - Gait disturbance [Fatal]
  - Mechanical ventilation [Fatal]
  - Pyrexia [Fatal]
  - Haemoglobin decreased [Fatal]
  - Fatigue [Fatal]
  - Rash [Fatal]
  - Blood pressure abnormal [Fatal]
  - Sepsis [Fatal]
  - Hypoaesthesia [Fatal]
  - Decreased appetite [Fatal]
  - Dysarthria [Fatal]
  - Nausea [Fatal]
  - Swelling face [Fatal]
